FAERS Safety Report 6928848-X (Version None)
Quarter: 2010Q3

REPORT INFORMATION
  Report Type: 
  Country: None (occurrence: None)
  Receive Date: 20100817
  Receipt Date: 20100804
  Transmission Date: 20110219
  Serious: Yes (Other)
  Sender: FDA-Public Use
  Company Number: PHHY2010CA47632

PATIENT
  Sex: Female

DRUGS (1)
  1. ZOMETA [Suspect]
     Indication: LUNG CANCER METASTATIC
     Dosage: 4 MG EVERY 4 WEEKS
     Route: 042
     Dates: start: 20100626

REACTIONS (6)
  - AMNESIA [None]
  - BLOOD CALCIUM DECREASED [None]
  - IMPAIRED DRIVING ABILITY [None]
  - MALAISE [None]
  - PULMONARY EMBOLISM [None]
  - PULMONARY THROMBOSIS [None]
